FAERS Safety Report 7704066-2 (Version None)
Quarter: 2011Q3

REPORT INFORMATION
  Report Type: 
  Country: None (occurrence: None)
  Receive Date: 20110823
  Receipt Date: 20110810
  Transmission Date: 20111222
  Serious: Yes (Hospitalization)
  Sender: FDA-Public Use
  Company Number: US-JNJFOC-20090402342

PATIENT
  Sex: Female
  Weight: 47.4 kg

DRUGS (18)
  1. INFLIXIMAB [Suspect]
     Route: 042
     Dates: start: 20060515
  2. POLYSACCHARIDE-IRON COMPLEX [Concomitant]
  3. INFLIXIMAB [Suspect]
     Route: 042
     Dates: start: 20070711
  4. ANTIBIOTICS [Concomitant]
     Indication: CROHN'S DISEASE
  5. METRONIDAZOLE [Concomitant]
  6. INFLIXIMAB [Suspect]
     Route: 042
     Dates: start: 20080624
  7. INFLIXIMAB [Suspect]
     Route: 042
     Dates: start: 20080820
  8. HUMIRA [Concomitant]
     Dosage: LAST DOSE WAS CLOSE TO 28-APR-2008
  9. INFLIXIMAB [Suspect]
     Indication: CROHN'S DISEASE
     Dosage: RECEIVED INDUCTION DOSING AT WEEK 0, 2, AND 6 AND THEN MAINTENANCE OF EVERY 8 WEEKS
     Route: 042
     Dates: start: 20080515
  10. HUMIRA [Concomitant]
     Dosage: TAKEN AT BASELINE VISIT 1. RECEIVED A DOSE ON 21-APR-2008
     Dates: start: 20070921
  11. INFLIXIMAB [Suspect]
     Route: 042
     Dates: start: 20080527
  12. PREDNISONE TAB [Concomitant]
  13. ACETAMINOPHEN [Concomitant]
     Indication: PREMEDICATION
  14. INFLIXIMAB [Suspect]
     Route: 042
     Dates: start: 20090303
  15. ANTIBIOTICS [Concomitant]
     Indication: INFLAMMATORY BOWEL DISEASE
  16. ANTIHISTAMINES [Concomitant]
     Indication: PREMEDICATION
  17. CIPROFLOXACIN [Concomitant]
  18. PERIACTIN [Concomitant]

REACTIONS (4)
  - LARGE INTESTINE PERFORATION [None]
  - MELANOCYTIC NAEVUS [None]
  - ABSCESS INTESTINAL [None]
  - SMALL INTESTINAL OBSTRUCTION [None]
